FAERS Safety Report 22227214 (Version 1)
Quarter: 2023Q2

REPORT INFORMATION
  Report Type: Spontaneous
  Country: US (occurrence: None)
  Receive Date: 20230419
  Receipt Date: 20230419
  Transmission Date: 20230722
  Serious: Yes (Other)
  Sender: FDA-Public Use
  Company Number: US-ROCHE-3333830

PATIENT
  Age: 54 Year
  Sex: Female

DRUGS (1)
  1. XOLAIR [Suspect]
     Active Substance: OMALIZUMAB
     Indication: Urticaria
     Dosage: 1 EVERY 5 TO 6 WEEKS, LAST INJECTION WAS ON 06/MAR/2023
     Route: 058

REACTIONS (2)
  - Syncope [Unknown]
  - Off label use [Unknown]

NARRATIVE: CASE EVENT DATE: 20230306
